FAERS Safety Report 8671647 (Version 5)
Quarter: 2014Q3

REPORT INFORMATION
  Report Type: Spontaneous
  Country: US (occurrence: US)
  Receive Date: 20120718
  Receipt Date: 20140708
  Transmission Date: 20150326
  Serious: Yes (Hospitalization, Other)
  Sender: FDA-Public Use
  Company Number: US-009507513-2012SP034987

PATIENT
  Sex: Female
  Weight: 90.7 kg

DRUGS (6)
  1. NUVARING [Suspect]
     Active Substance: ETHINYL ESTRADIOL\ETONOGESTREL
     Indication: CONTRACEPTION
  2. NUVARING [Suspect]
     Active Substance: ETHINYL ESTRADIOL\ETONOGESTREL
     Indication: MIGRAINE
     Dosage: UNK
     Route: 067
     Dates: start: 200501, end: 20060517
  3. VENLAFAXINE HYDROCHLORIDE. [Concomitant]
     Active Substance: VENLAFAXINE HYDROCHLORIDE
     Indication: DEPRESSION
     Dosage: 112.5 MG, QD
     Dates: start: 2000, end: 2006
  4. VENLAFAXINE HYDROCHLORIDE. [Concomitant]
     Active Substance: VENLAFAXINE HYDROCHLORIDE
     Indication: ADJUSTMENT DISORDER
  5. VENLAFAXINE HYDROCHLORIDE. [Concomitant]
     Active Substance: VENLAFAXINE HYDROCHLORIDE
     Indication: CONTRACEPTION
  6. NUVARING [Suspect]
     Active Substance: ETHINYL ESTRADIOL\ETONOGESTREL
     Indication: HORMONE THERAPY

REACTIONS (10)
  - Off label use [Unknown]
  - Bronchitis [Unknown]
  - Lung infiltration [Unknown]
  - Pulmonary infarction [Unknown]
  - Headache [Not Recovered/Not Resolved]
  - Incorrect drug administration duration [Unknown]
  - Metrorrhagia [Recovering/Resolving]
  - Loss of libido [Unknown]
  - Hypertension [Unknown]
  - Pulmonary embolism [Unknown]

NARRATIVE: CASE EVENT DATE: 20050113
